FAERS Safety Report 6537225-5 (Version None)
Quarter: 2010Q1

REPORT INFORMATION
  Report Type: 
  Country: None (occurrence: None)
  Receive Date: 20100114
  Receipt Date: 20100107
  Transmission Date: 20100710
  Serious: Yes (Hospitalization)
  Sender: FDA-Public Use
  Company Number: US-ROCHE-676240

PATIENT
  Sex: Female
  Weight: 71.5 kg

DRUGS (23)
  1. BLINDED TOCILIZUMAB [Suspect]
     Indication: RHEUMATOID ARTHRITIS
     Route: 042
     Dates: start: 20081006
  2. TOCILIZUMAB [Suspect]
     Indication: RHEUMATOID ARTHRITIS
     Dosage: ROUTE, DOSE AND FREQUENCY AS PER PROTOCOL
     Route: 042
  3. METOPROLOL [Concomitant]
     Dates: start: 20030310
  4. METOPROLOL [Concomitant]
     Dates: start: 20090326
  5. ZETIA [Concomitant]
     Dates: start: 20040310
  6. NORTRIPTYLINE [Concomitant]
     Dates: start: 19930101
  7. NORTRIPTYLINE [Concomitant]
     Dates: start: 20020101
  8. NORTRIPTYLINE [Concomitant]
     Dosage: FREQUENCY: QD
     Dates: start: 20030301
  9. NORTRIPTYLINE [Concomitant]
     Dates: start: 20081201
  10. AVALIDE [Concomitant]
     Dosage: TDD: 300/ 12.5 MG
     Dates: start: 20030301
  11. PLAVIX [Concomitant]
     Dates: start: 20020301
  12. PLAVIX [Concomitant]
     Dates: start: 20091201
  13. PRILOSEC [Concomitant]
     Dates: start: 20000310
  14. DARVOCET-N 100 [Concomitant]
     Route: 042
     Dates: start: 20000101
  15. ACETAMINOPHEN [Concomitant]
     Dosage: PRE-INFUSION
     Dates: start: 20081006
  16. NORVASC [Concomitant]
     Dates: start: 20001215
  17. PREMARIN [Concomitant]
     Dates: start: 20090521
  18. METHOTREXATE [Concomitant]
     Dates: start: 20080618
  19. FOLIC ACID [Concomitant]
     Dates: start: 20080310
  20. COLACE [Concomitant]
     Dates: start: 20091215
  21. LOPRESSOR [Concomitant]
  22. DIOVAN HCT [Concomitant]
  23. TYLENOL (CAPLET) [Concomitant]

REACTIONS (4)
  - BACK PAIN [None]
  - BACTERAEMIA [None]
  - LOCALISED INFECTION [None]
  - OSTEOMYELITIS [None]
